FAERS Safety Report 19975592 (Version 1)
Quarter: 2021Q4

REPORT INFORMATION
  Report Type: Spontaneous
  Country: US (occurrence: US)
  Receive Date: 20211021
  Receipt Date: 20211021
  Transmission Date: 20220303
  Serious: Yes (Hospitalization)
  Sender: FDA-Public Use
  Company Number: US-JNJFOC-20211021198

PATIENT
  Age: 19 Year
  Sex: Female

DRUGS (1)
  1. TYLENOL EXTRA STRENGTH [Suspect]
     Active Substance: ACETAMINOPHEN
     Indication: Product used for unknown indication
     Dosage: SHE INGESTED 14 APAP 500MG
     Route: 048
     Dates: start: 20211009

REACTIONS (5)
  - Suicide attempt [Unknown]
  - Abdominal pain [Unknown]
  - Blood bilirubin increased [Unknown]
  - Abdominal tenderness [Unknown]
  - Intentional overdose [Unknown]

NARRATIVE: CASE EVENT DATE: 20211009
